FAERS Safety Report 11834487 (Version 9)
Quarter: 2020Q4

REPORT INFORMATION
  Report Type: Spontaneous
  Country: US (occurrence: US)
  Receive Date: 20151214
  Receipt Date: 20201104
  Transmission Date: 20210113
  Serious: Yes (Hospitalization, Other)
  Sender: FDA-Public Use
  Company Number: US-JNJFOC-20151107662

PATIENT
  Age: 25 Year
  Sex: Female
  Weight: 61.68 kg

DRUGS (13)
  1. RIVAROXABAN [Suspect]
     Active Substance: RIVAROXABAN
     Indication: OVARIAN VEIN THROMBOSIS
     Dosage: 36 MG, DAILY
     Route: 048
     Dates: start: 2014, end: 2015
  2. MIRENA [Concomitant]
     Active Substance: LEVONORGESTREL
     Indication: CONTRACEPTION
  3. ASA [Concomitant]
     Active Substance: ASPIRIN
  4. IBUPROFEN. [Concomitant]
     Active Substance: IBUPROFEN
  5. COUMADIN [Concomitant]
     Active Substance: WARFARIN SODIUM
  6. TRAZODONE [Concomitant]
     Active Substance: TRAZODONE HYDROCHLORIDE
  7. RIVAROXABAN [Suspect]
     Active Substance: RIVAROXABAN
     Indication: DEEP VEIN THROMBOSIS
  8. ACETAMINOPHEN;CODEINE [Concomitant]
     Active Substance: ACETAMINOPHEN\CODEINE PHOSPHATE
  9. PERCOCET [Concomitant]
     Active Substance: ACETAMINOPHEN\OXYCODONE HYDROCHLORIDE
  10. OXYCODONE [Concomitant]
     Active Substance: OXYCODONE
  11. IMITREX [Concomitant]
     Active Substance: SUMATRIPTAN SUCCINATE
  12. FENTANYL. [Concomitant]
     Active Substance: FENTANYL
  13. TYLENOL [Concomitant]
     Active Substance: ACETAMINOPHEN

REACTIONS (43)
  - Fatigue [Not Recovered/Not Resolved]
  - Hot flush [Unknown]
  - Pelvic pain [Unknown]
  - Mental disorder [Unknown]
  - Ovarian cyst [Unknown]
  - Dysuria [Unknown]
  - Dysmenorrhoea [Unknown]
  - Dyspareunia [Unknown]
  - Acne [Unknown]
  - Arthralgia [Unknown]
  - Ovarian cyst ruptured [Unknown]
  - Weight decreased [Recovered/Resolved]
  - Alopecia [Unknown]
  - Vaginal discharge [Unknown]
  - Back pain [Unknown]
  - Depression [Unknown]
  - Bacterial vaginosis [Unknown]
  - Rash pruritic [Recovered/Resolved]
  - Abdominal pain [Unknown]
  - Cystitis [Recovered/Resolved]
  - Dizziness [Unknown]
  - Neck pain [Unknown]
  - Musculoskeletal chest pain [Unknown]
  - Device use issue [Unknown]
  - Device dislocation [Unknown]
  - Pain [Unknown]
  - Uterine perforation [Unknown]
  - Menometrorrhagia [Unknown]
  - Dental caries [Unknown]
  - Rash pruritic [Recovered/Resolved]
  - Headache [Unknown]
  - Asthenia [Not Recovered/Not Resolved]
  - Nausea [Unknown]
  - Bacterial infection [Recovered/Resolved]
  - Herpes zoster [Unknown]
  - Dysstasia [Unknown]
  - Fallopian tube perforation [Unknown]
  - Ovarian vein thrombosis [Unknown]
  - Ultrasound liver abnormal [Unknown]
  - Migraine [Unknown]
  - Furuncle [Unknown]
  - Vulvovaginal mycotic infection [Recovered/Resolved]
  - Abdominal pain lower [Unknown]

NARRATIVE: CASE EVENT DATE: 2014
